FAERS Safety Report 4705418-5 (Version None)
Quarter: 2005Q2

REPORT INFORMATION
  Report Type: 
  Country: None (occurrence: None)
  Receive Date: 20050629
  Receipt Date: 20050328
  Transmission Date: 20051028
  Serious: Yes (Death, Life-Threatening, Other)
  Sender: FDA-Public Use
  Company Number: 200512816GDDC

PATIENT
  Age: 79 Year
  Sex: Male
  Weight: 75 kg

DRUGS (8)
  1. HEPARIN [Suspect]
     Indication: MYOCARDIAL INFARCTION
  2. HEPARIN SODIUM [Suspect]
     Indication: MYOCARDIAL INFARCTION
     Dosage: ONCE IVB
     Route: 040
     Dates: start: 20050325, end: 20050325
  3. HEPARIN [Suspect]
     Indication: MYOCARDIAL INFARCTION
     Dosage: SC
     Route: 058
     Dates: start: 20050325, end: 20050326
  4. HEPARIN SODIUM [Suspect]
     Indication: MYOCARDIAL INFARCTION
     Dosage: CONT IVF
     Route: 042
     Dates: start: 20050325, end: 20050326
  5. ASPIRIN [Suspect]
     Indication: MYOCARDIAL INFARCTION
     Dosage: 300 MG/DAY PO
     Route: 048
     Dates: start: 20050325, end: 20050326
  6. TNKASE [Suspect]
     Indication: MYOCARDIAL INFARCTION
     Dosage: 40 MG/DAY IV
     Route: 042
     Dates: start: 20050325, end: 20050325
  7. NIFEDIPINE [Concomitant]
  8. GLIBENCLAMIDE [Concomitant]

REACTIONS (11)
  - ANAEMIA [None]
  - ARRHYTHMIA SUPRAVENTRICULAR [None]
  - CARDIAC INDEX DECREASED [None]
  - CARDIOGENIC SHOCK [None]
  - GASTROINTESTINAL HAEMORRHAGE [None]
  - HAEMATEMESIS [None]
  - HYPOTENSION [None]
  - MELAENA [None]
  - OLIGURIA [None]
  - PULMONARY ARTERIAL WEDGE PRESSURE INCREASED [None]
  - PULMONARY OEDEMA [None]
